FAERS Safety Report 6887521-7 (Version None)
Quarter: 2010Q3

REPORT INFORMATION
  Report Type: 
  Country: None (occurrence: None)
  Receive Date: 20100730
  Receipt Date: 20100720
  Transmission Date: 20110219
  Serious: Yes (Other)
  Sender: FDA-Public Use
  Company Number: US-BAYER-201028697NA

PATIENT
  Age: 31 Year
  Sex: Female

DRUGS (1)
  1. MIRENA [Suspect]
     Indication: CONTRACEPTION
     Dosage: FREQUENCY CONTINUOUS
     Route: 015
     Dates: start: 20071001

REACTIONS (7)
  - ABDOMINAL PAIN [None]
  - ANOVULATORY CYCLE [None]
  - DEVICE DISLOCATION [None]
  - FATIGUE [None]
  - GENITAL HAEMORRHAGE [None]
  - MENSTRUATION IRREGULAR [None]
  - METRORRHAGIA [None]
